FAERS Safety Report 24105032 (Version 1)
Quarter: 2024Q3

REPORT INFORMATION
  Report Type: Spontaneous
  Country: US (occurrence: US)
  Receive Date: 20240717
  Receipt Date: 20240717
  Transmission Date: 20241017
  Serious: Yes (Disabling)
  Sender: ABBVIE
  Company Number: US-ALLERGAN-2228906US

PATIENT
  Sex: Male
  Weight: 135 kg

DRUGS (15)
  1. VRAYLAR [Suspect]
     Active Substance: CARIPRAZINE
     Indication: Bipolar disorder
     Dosage: TIME INTERVAL: 0.33333333 DAYS: DAILY DOSE: 3.0 DF
     Route: 048
     Dates: start: 2019
  2. CEREBROLYSIN [Concomitant]
     Active Substance: CEREBROLYSIN
     Indication: Product used for unknown indication
     Dosage: DOSE DESC: UNK
  3. METOPROLOL [Concomitant]
     Active Substance: METOPROLOL
     Indication: Hypertension
     Dosage: DOSE DESC: UNK
  4. VITAMIN E [Concomitant]
     Active Substance: .ALPHA.-TOCOPHEROL
     Indication: Vitamin supplementation
  5. AVEENO [Concomitant]
     Active Substance: DIMETHICONE\HOMOSALATE\OCTINOXATE\OCTISALATE\TITANIUM DIOXIDE
     Indication: Supplementation therapy
  6. NIACIN [Concomitant]
     Active Substance: NIACIN
     Indication: Vitamin supplementation
     Dosage: DOSE DESC: UNK
  7. CALENDULA [Concomitant]
     Active Substance: CALENDULA OFFICINALIS FLOWERING TOP
     Indication: Dry skin
  8. TRIAMCINOLONE [Concomitant]
     Active Substance: TRIAMCINOLONE
     Indication: Hypersensitivity
     Dosage: DOSE DESC: UNK
  9. IBUPROFEN [Concomitant]
     Active Substance: IBUPROFEN
     Indication: Pain
  10. CORTISOL [Concomitant]
     Active Substance: HYDROCORTISONE
     Indication: Adrenocortical steroid therapy
  11. LUGOL [Concomitant]
     Active Substance: IODINE\POTASSIUM IODIDE
     Indication: Product used for unknown indication
  12. DIMETHYL SULFONE [Concomitant]
     Active Substance: DIMETHYL SULFONE
     Indication: Nutritional supplementation
  13. FIBER THERAPY (CALCIUM POLYCARBOPHIL) [Concomitant]
     Active Substance: CALCIUM POLYCARBOPHIL
     Indication: Product used for unknown indication
     Dosage: DOSE DESC: UNK
  14. OLANZAPINE [Concomitant]
     Active Substance: OLANZAPINE
     Indication: Product used for unknown indication
     Dosage: DOSE DESC: UNK
  15. Valrian [Concomitant]
     Indication: Pain
     Dosage: ROOT

REACTIONS (13)
  - Disability [Unknown]
  - Somnolence [Not Recovered/Not Resolved]
  - Chest pain [Not Recovered/Not Resolved]
  - Pain in extremity [Not Recovered/Not Resolved]
  - Bradyphrenia [Not Recovered/Not Resolved]
  - Cerebral disorder [Not Recovered/Not Resolved]
  - Impaired work ability [Not Recovered/Not Resolved]
  - Illness [Unknown]
  - Myalgia [Unknown]
  - Diarrhoea [Not Recovered/Not Resolved]
  - Weight increased [Not Recovered/Not Resolved]
  - Feeling abnormal [Unknown]
  - Therapeutic response decreased [Unknown]
